FAERS Safety Report 20523957 (Version 1)
Quarter: 2022Q1

REPORT INFORMATION
  Report Type: Spontaneous
  Country: US (occurrence: US)
  Receive Date: 20220228
  Receipt Date: 20220228
  Transmission Date: 20220423
  Serious: Yes (Hospitalization)
  Sender: FDA-Public Use
  Company Number: US-CADILA HEALTHCARE LIMITED-US-ZYDUS-075131

PATIENT

DRUGS (2)
  1. METFORMIN [Suspect]
     Active Substance: METFORMIN HYDROCHLORIDE
     Indication: Suicide attempt
     Dosage: UNK
     Route: 065
  2. TRAZODONE [Suspect]
     Active Substance: TRAZODONE HYDROCHLORIDE
     Indication: Suicide attempt
     Dosage: UNK
     Route: 065

REACTIONS (6)
  - Distributive shock [Unknown]
  - Hyperkalaemia [Unknown]
  - Lactic acidosis [Unknown]
  - Hypoglycaemia [Unknown]
  - Intentional overdose [Unknown]
  - Expired product administered [Unknown]
